FAERS Safety Report 14946424 (Version 1)
Quarter: 2018Q2

REPORT INFORMATION
  Report Type: Spontaneous
  Country: US (occurrence: US)
  Receive Date: 20180529
  Receipt Date: 20180529
  Transmission Date: 20180711
  Serious: No
  Sender: FDA-Public Use
  Company Number: US-SA-2018SA143842

PATIENT
  Sex: Male

DRUGS (18)
  1. ENOXAPARIN SODIUM. [Concomitant]
     Active Substance: ENOXAPARIN SODIUM
  2. CEFUROXIME AXETIL. [Concomitant]
     Active Substance: CEFUROXIME AXETIL
  3. OMEPRAZOLE. [Concomitant]
     Active Substance: OMEPRAZOLE
  4. HYDROCODONE/ACETAMINOPHEN [Concomitant]
     Active Substance: ACETAMINOPHEN\HYDROCODONE
  5. TAMSULOSIN HCL [Concomitant]
     Active Substance: TAMSULOSIN HYDROCHLORIDE
  6. CARISOPRODOL. [Concomitant]
     Active Substance: CARISOPRODOL
  7. MODAFINIL. [Concomitant]
     Active Substance: MODAFINIL
  8. GABAPENTIN. [Concomitant]
     Active Substance: GABAPENTIN
  9. PREDNISONE. [Concomitant]
     Active Substance: PREDNISONE
  10. FLUOXETINE HCL [Concomitant]
     Active Substance: FLUOXETINE HYDROCHLORIDE
  11. OXYBUTYNIN CHLORIDE. [Concomitant]
     Active Substance: OXYBUTYNIN CHLORIDE
  12. OXYCODONE HYDROCHLORIDE. [Concomitant]
     Active Substance: OXYCODONE HYDROCHLORIDE
  13. AUBAGIO [Suspect]
     Active Substance: TERIFLUNOMIDE
     Indication: MULTIPLE SCLEROSIS
     Dosage: 14 MG, QD
     Dates: start: 20180705
  14. OXYCODONE AND ACETAMINOPHEN [Concomitant]
     Active Substance: ACETAMINOPHEN\OXYCODONE HYDROCHLORIDE
  15. BACLOFEN. [Concomitant]
     Active Substance: BACLOFEN
  16. LEVOFLOXACIN. [Concomitant]
     Active Substance: LEVOFLOXACIN
  17. ALPRAZOLAM. [Concomitant]
     Active Substance: ALPRAZOLAM
  18. GABAPENTINE [Concomitant]
     Active Substance: GABAPENTIN

REACTIONS (1)
  - Drug intolerance [Unknown]
